FAERS Safety Report 5762696-1 (Version None)
Quarter: 2008Q2

REPORT INFORMATION
  Report Type: 
  Country: None (occurrence: None)
  Receive Date: 20080609
  Receipt Date: 20080529
  Transmission Date: 20081010
  Serious: Yes (Hospitalization)
  Sender: FDA-Public Use
  Company Number: PT-MERCK-0805PRT00016

PATIENT
  Age: 14 Year
  Sex: Female
  Weight: 38 kg

DRUGS (2)
  1. SINGULAIR [Suspect]
     Indication: ASTHMA
     Route: 048
     Dates: start: 20080226, end: 20080507
  2. BUDESONIDE [Concomitant]
     Indication: ASTHMA
     Route: 048
     Dates: start: 20080110, end: 20080507

REACTIONS (2)
  - ALLERGIC GRANULOMATOUS ANGIITIS [None]
  - OVERDOSE [None]
